FAERS Safety Report 10855068 (Version 2)
Quarter: 2015Q1

REPORT INFORMATION
  Report Type: Spontaneous
  Country: JP (occurrence: None)
  Receive Date: 20150218
  Receipt Date: 20150311
  Transmission Date: 20150721
  Serious: Yes (Hospitalization, Other)
  Sender: FDA-Public Use
  Company Number: CLINIGEN-003453

PATIENT
  Age: 69 Year
  Sex: Male

DRUGS (6)
  1. BIFIDOBACTERIUM BIFIDUM [Concomitant]
  2. PREDNISOLONE. [Concomitant]
     Active Substance: PREDNISOLONE
  3. FOSCAVIR [Suspect]
     Active Substance: FOSCARNET SODIUM
     Indication: PRODUCT USED FOR UNKNOWN INDICATION
     Dates: start: 20150126, end: 20150129
  4. URSO [Concomitant]
     Active Substance: URSODIOL
  5. TACROLIMUS. [Concomitant]
     Active Substance: TACROLIMUS
  6. TAKEPRON [Concomitant]
     Active Substance: LANSOPRAZOLE

REACTIONS (3)
  - Feeling abnormal [None]
  - Somnolence [None]
  - Altered state of consciousness [None]

NARRATIVE: CASE EVENT DATE: 20150129
